FAERS Safety Report 17718190 (Version 1)
Quarter: 2020Q2

REPORT INFORMATION
  Report Type: Spontaneous
  Country: US (occurrence: US)
  Receive Date: 20200428
  Receipt Date: 20200428
  Transmission Date: 20200714
  Serious: No
  Sender: FDA-Public Use
  Company Number: US-HIKMA PHARMACEUTICALS USA INC.-US-H14001-19-05246

PATIENT
  Age: 44 Year
  Sex: Male
  Weight: 61.29 kg

DRUGS (2)
  1. DIAZEPAM. [Suspect]
     Active Substance: DIAZEPAM
     Indication: INSOMNIA
     Route: 048
  2. DIAZEPAM. [Suspect]
     Active Substance: DIAZEPAM
     Dosage: 8MG TAPERING BY 0.25MG EVERY 2 WEEKS
     Route: 048

REACTIONS (6)
  - Night sweats [Recovering/Resolving]
  - Balance disorder [Recovering/Resolving]
  - Tachycardia [Not Recovered/Not Resolved]
  - Hot flush [Recovering/Resolving]
  - Tachyphrenia [Recovering/Resolving]
  - Feeling cold [Recovering/Resolving]

NARRATIVE: CASE EVENT DATE: 201908
